FAERS Safety Report 9000787 (Version 2)
Quarter: 2013Q1

REPORT INFORMATION
  Report Type: Report from Study
  Country: AU (occurrence: AU)
  Receive Date: 20130107
  Receipt Date: 20130115
  Transmission Date: 20140127
  Serious: Yes (Hospitalization)
  Sender: FDA-Public Use
  Company Number: PHHO2013AU000523

PATIENT
  Age: 54 Year
  Sex: Female

DRUGS (4)
  1. CGS 20267 [Suspect]
     Indication: BREAST CANCER
     Dosage: 2.5 MG, QD
     Route: 048
     Dates: start: 20100902, end: 20130102
  2. EFFEXOR [Concomitant]
     Dosage: 225 MG, UNK
     Route: 048
     Dates: start: 200703
  3. PANADOL OSTEO [Concomitant]
     Dosage: PRN
     Route: 048
     Dates: start: 201005
  4. OSTELIN VITAMIN D [Concomitant]
     Dosage: UNK
     Route: 048
     Dates: start: 201002

REACTIONS (4)
  - Cardiac failure congestive [Not Recovered/Not Resolved]
  - Pericardial effusion [Not Recovered/Not Resolved]
  - Pleural effusion [Not Recovered/Not Resolved]
  - Chest pain [Not Recovered/Not Resolved]
